FAERS Safety Report 8545821-9 (Version None)
Quarter: 2012Q3

REPORT INFORMATION
  Report Type: 
  Country: None (occurrence: None)
  Receive Date: 20120727
  Receipt Date: 20120725
  Transmission Date: 20120928
  Serious: Yes (Other)
  Sender: FDA-Public Use
  Company Number: US-TEVA-350327USA

PATIENT
  Sex: Male

DRUGS (1)
  1. COPAXONE [Suspect]
     Indication: MULTIPLE SCLEROSIS
     Route: 058
     Dates: start: 20111209

REACTIONS (4)
  - MULTIPLE SCLEROSIS RELAPSE [None]
  - RESTLESS LEGS SYNDROME [None]
  - HYPOAESTHESIA [None]
  - PAIN [None]
